FAERS Safety Report 11858583 (Version 1)
Quarter: 2015Q4

REPORT INFORMATION
  Report Type: Spontaneous
  Country: US (occurrence: US)
  Receive Date: 20151222
  Receipt Date: 20151222
  Transmission Date: 20160305
  Serious: No
  Sender: FDA-Public Use
  Company Number: US-TEVA-598710USA

PATIENT
  Sex: Female

DRUGS (2)
  1. CEFPROZIL. [Suspect]
     Active Substance: CEFPROZIL
     Route: 065
  2. SULFAMETHOXAZOLE-TRIMETHOPRIM (SMZ) [Suspect]
     Active Substance: SULFAMETHOXAZOLE\TRIMETHOPRIM
     Route: 065

REACTIONS (1)
  - Drug hypersensitivity [Unknown]
